FAERS Safety Report 11605403 (Version 1)
Quarter: 2015Q4

REPORT INFORMATION
  Report Type: Spontaneous
  Country: US (occurrence: US)
  Receive Date: 20151007
  Receipt Date: 20151007
  Transmission Date: 20160304
  Serious: Yes (Hospitalization)
  Sender: FDA-Public Use
  Company Number: US-SA-2015SA148342

PATIENT
  Age: 75 Year
  Sex: Female

DRUGS (11)
  1. MULTAQ [Suspect]
     Active Substance: DRONEDARONE
     Route: 065
  2. DIGOXIN. [Concomitant]
     Active Substance: DIGOXIN
     Dosage: INCREASED FROM 0.125 MG EVERY OTHER DAY TO 0.125 ALTERNATING WITH 0.25 MG DAILY
  3. LASIX [Concomitant]
     Active Substance: FUROSEMIDE
     Route: 042
  4. XARELTO [Concomitant]
     Active Substance: RIVAROXABAN
  5. MULTAQ [Suspect]
     Active Substance: DRONEDARONE
     Route: 065
  6. LASIX [Concomitant]
     Active Substance: FUROSEMIDE
     Dosage: 2 DOSES?STRENGTH: 20 MG
  7. MULTAQ [Suspect]
     Active Substance: DRONEDARONE
     Route: 065
  8. PROZAC [Concomitant]
     Active Substance: FLUOXETINE HYDROCHLORIDE
     Dosage: STRENGTH: 40 MG
     Route: 048
  9. DIGOXIN. [Concomitant]
     Active Substance: DIGOXIN
     Dosage: STRENGTH: 0.125 MG
     Route: 048
  10. CARDIZEM [Concomitant]
     Active Substance: DILTIAZEM HYDROCHLORIDE
     Dosage: STRENGTH: 240 MG
     Route: 048
  11. HYDROCHLOROTHIAZIDE/TRIAMTERENE [Suspect]
     Active Substance: HYDROCHLOROTHIAZIDE\TRIAMTERENE
     Route: 048

REACTIONS (15)
  - Pulmonary toxicity [Recovering/Resolving]
  - Dizziness [Unknown]
  - Gastrointestinal disorder [Unknown]
  - Dyspnoea exertional [Recovering/Resolving]
  - Weight increased [Unknown]
  - Cough [Recovering/Resolving]
  - Lung infiltration [Recovering/Resolving]
  - Nocturia [Unknown]
  - Rash macular [Recovering/Resolving]
  - Injury [Unknown]
  - Hypersensitivity [Unknown]
  - Oedema peripheral [Unknown]
  - Wheezing [Recovering/Resolving]
  - Fatigue [Recovering/Resolving]
  - Urinary incontinence [Unknown]
